FAERS Safety Report 4726917-6 (Version None)
Quarter: 2005Q3

REPORT INFORMATION
  Report Type: 
  Country: None (occurrence: None)
  Receive Date: 20050726
  Receipt Date: 20050714
  Transmission Date: 20060218
  Serious: Yes (Hospitalization, Other)
  Sender: FDA-Public Use
  Company Number: 2005102275

PATIENT
  Age: 53 Year
  Sex: Male
  Weight: 105.6881 kg

DRUGS (1)
  1. LIPITOR [Suspect]
     Indication: BLOOD CHOLESTEROL
     Dosage: 10 MG (10 MG, 1 IN 1 D), ORAL
     Route: 048
     Dates: end: 20041001

REACTIONS (3)
  - DIFFICULTY IN WALKING [None]
  - FALL [None]
  - MUSCLE INJURY [None]
